FAERS Safety Report 18366308 (Version 2)
Quarter: 2025Q2

REPORT INFORMATION
  Report Type: Spontaneous
  Country: GB (occurrence: GB)
  Receive Date: 20201009
  Receipt Date: 20250611
  Transmission Date: 20250717
  Serious: Yes (Other)
  Sender: TAKEDA
  Company Number: GB-BEH-2020122669

PATIENT
  Age: 8 Year
  Sex: Female

DRUGS (20)
  1. HUMAN IMMUNOGLOBULIN G [Suspect]
     Active Substance: HUMAN IMMUNOGLOBULIN G
     Indication: Chronic inflammatory demyelinating polyradiculoneuropathy
     Dosage: UNK UNK, 1/WEEK
     Dates: start: 2007
  2. HUMAN IMMUNOGLOBULIN G [Suspect]
     Active Substance: HUMAN IMMUNOGLOBULIN G
     Dosage: UNK UNK, 1/WEEK
     Dates: start: 2012
  3. HUMAN IMMUNOGLOBULIN G [Suspect]
     Active Substance: HUMAN IMMUNOGLOBULIN G
     Dosage: UNK UNK, 1/WEEK
     Dates: start: 201311
  4. HUMAN IMMUNOGLOBULIN G [Suspect]
     Active Substance: HUMAN IMMUNOGLOBULIN G
     Dosage: 130 GRAM, 1/WEEK
     Dates: start: 201311
  5. PREDNISOLONE [Concomitant]
     Active Substance: PREDNISOLONE
     Dosage: UNK UNK, QOD
  6. PREDNISOLONE [Concomitant]
     Active Substance: PREDNISOLONE
     Dosage: 12 MILLIGRAM, QOD
  7. PREDNISOLONE [Concomitant]
     Active Substance: PREDNISOLONE
     Dosage: 15 MILLIGRAM, QOD
  8. PREDNISOLONE [Concomitant]
     Active Substance: PREDNISOLONE
     Dosage: 13 MILLIGRAM, QOD
  9. AZATHIOPRINE [Concomitant]
     Active Substance: AZATHIOPRINE
     Dosage: 175 MILLIGRAM, QD
  10. METHOTREXATE [Concomitant]
     Active Substance: METHOTREXATE
     Dosage: 12.5 MILLIGRAM, 1/WEEK
  11. CYCLOSPORINE [Concomitant]
     Active Substance: CYCLOSPORINE
  12. RITUXIMAB [Concomitant]
     Active Substance: RITUXIMAB
     Dosage: 3 MILLIGRAM, BID
     Dates: start: 199811
  13. TACROLIMUS [Concomitant]
     Active Substance: TACROLIMUS
     Dosage: 3 MILLIGRAM, BID
     Dates: start: 199811
  14. MYCOPHENOLIC ACID [Concomitant]
     Active Substance: MYCOPHENOLIC ACID
     Dosage: UNK, BID
  15. ALEMTUZUMAB [Concomitant]
     Active Substance: ALEMTUZUMAB
  16. ALEMTUZUMAB [Concomitant]
     Active Substance: ALEMTUZUMAB
  17. FINGOLIMOD [Concomitant]
     Active Substance: FINGOLIMOD
     Dosage: 0.5 MILLIGRAM, QD
     Dates: start: 201311
  18. INTERFERON BETA [Concomitant]
     Active Substance: INTERFERON BETA
     Dosage: UNK UNK, 3/WEEK
  19. ABATACEPT [Concomitant]
     Active Substance: ABATACEPT
     Indication: Laryngeal dyskinesia
  20. ABATACEPT [Concomitant]
     Active Substance: ABATACEPT
     Indication: Muscle strength abnormal

REACTIONS (2)
  - Therapeutic product effect incomplete [Unknown]
  - Intentional overdose [Unknown]
